FAERS Safety Report 6424043-1 (Version None)
Quarter: 2009Q4

REPORT INFORMATION
  Report Type: 
  Country: None (occurrence: None)
  Receive Date: 20091102
  Receipt Date: 20091019
  Transmission Date: 20100525
  Serious: Yes (Disabling)
  Sender: FDA-Public Use
  Company Number: US-MYLANLABS-2009S1018228

PATIENT
  Age: 41 Year
  Sex: Female

DRUGS (3)
  1. ADRIAMYCIN PFS [Suspect]
     Indication: BREAST CANCER STAGE II
     Dosage: EVERY 2 WEEKS [DOSE NOT STATED]
  2. CYCLOPHOSPHAMIDE [Suspect]
     Indication: BREAST CANCER STAGE II
     Dosage: EVERY 2 WEEKS [DOSE NOT STATED]
  3. PACLITAXEL [Suspect]
     Indication: BREAST CANCER STAGE II
     Dosage: DOSAGE NOT STATED

REACTIONS (3)
  - ERYTHEMA [None]
  - SKIN EXFOLIATION [None]
  - VITILIGO [None]
